FAERS Safety Report 19685193 (Version 2)
Quarter: 2021Q3

REPORT INFORMATION
  Report Type: Spontaneous
  Country: US (occurrence: US)
  Receive Date: 20210811
  Receipt Date: 20210813
  Transmission Date: 20211014
  Serious: Yes (Death, Other)
  Sender: FDA-Public Use
  Company Number: US-CIPLA LTD.-2021US05446

PATIENT

DRUGS (3)
  1. METHOTREXATE. [Suspect]
     Active Substance: METHOTREXATE
     Indication: LYMPHOMA AIDS RELATED
     Dosage: UNK, MAX DOSE: 3G/M2
     Route: 065
  2. LOPINAVIR/RITONAVIR [Suspect]
     Active Substance: LOPINAVIR\RITONAVIR
     Indication: LYMPHOMA AIDS RELATED
     Dosage: UNK
     Route: 065
  3. EMTRICITABINE/TENOFOVIR [Suspect]
     Active Substance: EMTRICITABINE\TENOFOVIR
     Indication: LYMPHOMA AIDS RELATED
     Dosage: UNK
     Route: 065

REACTIONS (1)
  - Sepsis [Fatal]
